FAERS Safety Report 6855657-2 (Version None)
Quarter: 2010Q3

REPORT INFORMATION
  Report Type: 
  Country: None (occurrence: None)
  Receive Date: 20100719
  Receipt Date: 20090923
  Transmission Date: 20110219
  Serious: No
  Sender: FDA-Public Use
  Company Number: US-KINGPHARMUSA00001-K200901179

PATIENT
  Sex: Female
  Weight: 59.864 kg

DRUGS (3)
  1. LEVOXYL [Suspect]
     Indication: THYROID DISORDER
     Dosage: 25 MCG, QD
     Route: 048
  2. LEVOXYL [Suspect]
     Dosage: 75 OR 100 MCG
     Dates: start: 20080101, end: 20080101
  3. ATENOLOL [Concomitant]
     Indication: HYPERTENSION
     Dosage: 25 MG, QHS
     Route: 048

REACTIONS (6)
  - DIARRHOEA [None]
  - DIZZINESS [None]
  - DRUG DISPENSING ERROR [None]
  - DRUG INEFFECTIVE [None]
  - HYPERHIDROSIS [None]
  - PYREXIA [None]
